FAERS Safety Report 7556392-8 (Version None)
Quarter: 2011Q2

REPORT INFORMATION
  Report Type: 
  Country: None (occurrence: None)
  Receive Date: 20110620
  Receipt Date: 20110609
  Transmission Date: 20111010
  Serious: Yes (Hospitalization)
  Sender: FDA-Public Use
  Company Number: SE-AMGEN-SWESP2011020850

PATIENT
  Age: 72 Year
  Sex: Male

DRUGS (4)
  1. WARAN [Concomitant]
     Indication: ATRIAL FIBRILLATION
     Dosage: UNK
  2. ETANERCEPT [Suspect]
     Indication: RHEUMATOID ARTHRITIS
     Dosage: 50 MG, QWK
     Dates: start: 20031120, end: 20101119
  3. PREDNISOLONE [Concomitant]
     Dosage: 5 MG, 1X/DAY
     Dates: start: 20070618
  4. METHOTREXATE SODIUM [Concomitant]
     Dosage: 20 MG, WEEKLY
     Dates: start: 19981119

REACTIONS (2)
  - PANCREATIC CARCINOMA METASTATIC [None]
  - METASTASES TO LIVER [None]
